FAERS Safety Report 10543360 (Version 1)
Quarter: 2014Q4

REPORT INFORMATION
  Report Type: Spontaneous
  Country: US (occurrence: None)
  Receive Date: 20141010
  Receipt Date: 20141010
  Transmission Date: 20150529
  Serious: No
  Sender: FDA-Public Use
  Company Number: 163-POMAL-14031329

PATIENT
  Age: 83 Year
  Sex: Male
  Weight: 34.79 kg

DRUGS (3)
  1. GLIPIZIDE-METFROMIN(GLYNASEMF) [Concomitant]
  2. TRAMADOL HCL(TRAMADOL HYDROCHLORIDE)(TABLETS) [Concomitant]
  3. POMALYST [Suspect]
     Active Substance: POMALIDOMIDE
     Indication: PLASMA CELL MYELOMA
     Dosage: 4 MG, 21 IN 28 D, PO
     Route: 048
     Dates: start: 20131120

REACTIONS (2)
  - Tooth disorder [None]
  - Constipation [None]

NARRATIVE: CASE EVENT DATE: 2014
